FAERS Safety Report 7614109-2 (Version None)
Quarter: 2011Q3

REPORT INFORMATION
  Report Type: 
  Country: None (occurrence: None)
  Receive Date: 20110708
  Receipt Date: 20110628
  Transmission Date: 20111222
  Serious: Yes (Hospitalization)
  Sender: FDA-Public Use
  Company Number: MPS1-1000325

PATIENT
  Age: 18 Year
  Sex: Male
  Weight: 79 kg

DRUGS (1)
  1. ALDURAZYME [Suspect]
     Indication: MUCOPOLYSACCHARIDOSIS I
     Dosage: 47 MG, 1X/W, INTRAVENOUS
     Route: 042
     Dates: start: 20010717

REACTIONS (2)
  - CORNEAL DISORDER [None]
  - CORNEAL TRANSPLANT [None]
